FAERS Safety Report 11944130 (Version 1)
Quarter: 2016Q1

REPORT INFORMATION
  Report Type: Spontaneous
  Country: US (occurrence: US)
  Receive Date: 20160125
  Receipt Date: 20160125
  Transmission Date: 20160526
  Serious: No
  Sender: FDA-Public Use
  Company Number: US-UNITED THERAPEUTICS-UNT-2015-004753

PATIENT
  Age: 42 Year
  Sex: Female
  Weight: 71.66 kg

DRUGS (6)
  1. TRACLEER [Concomitant]
     Active Substance: BOSENTAN
     Indication: PRODUCT USED FOR UNKNOWN INDICATION
  2. ADCIRCA [Concomitant]
     Active Substance: TADALAFIL
     Indication: PRODUCT USED FOR UNKNOWN INDICATION
  3. REMODULIN [Suspect]
     Active Substance: TREPROSTINIL
     Dosage: UNK UNK, CONTINUING
     Dates: start: 20130417
  4. REMODULIN [Suspect]
     Active Substance: TREPROSTINIL
     Indication: PULMONARY HYPERTENSION
     Dosage: 0.072 ?G/KG/MIN, CONTINUING
     Route: 058
     Dates: start: 20130306
  5. REMODULIN [Suspect]
     Active Substance: TREPROSTINIL
     Dosage: UNK
  6. ASPIRIN                            /00002701/ [Concomitant]
     Active Substance: ASPIRIN
     Indication: PRODUCT USED FOR UNKNOWN INDICATION

REACTIONS (13)
  - Neuralgia [Unknown]
  - Infusion site pain [Not Recovered/Not Resolved]
  - Infusion site erythema [Not Recovered/Not Resolved]
  - Syncope [Unknown]
  - Infusion site oedema [Not Recovered/Not Resolved]
  - Infusion site cellulitis [Recovered/Resolved]
  - Infusion site warmth [Unknown]
  - Infusion site reaction [Not Recovered/Not Resolved]
  - Infusion site discharge [Recovered/Resolved]
  - Infusion site pruritus [Recovered/Resolved]
  - Echocardiogram abnormal [Not Recovered/Not Resolved]
  - Hypotension [Unknown]
  - Infusion site infection [Unknown]

NARRATIVE: CASE EVENT DATE: 2015
